FAERS Safety Report 4935238-8 (Version None)
Quarter: 2006Q1

REPORT INFORMATION
  Report Type: 
  Country: None (occurrence: None)
  Receive Date: 20060302
  Receipt Date: 20060216
  Transmission Date: 20060701
  Serious: Yes (Life-Threatening)
  Sender: FDA-Public Use
  Company Number: 2006-DE-00889GD

PATIENT
  Age: 12 Month
  Sex: Female

DRUGS (3)
  1. SALBUTAMOL (SALBUTAMOL) [Suspect]
     Indication: STRIDOR
     Dosage: ONCE, IH
     Route: 055
  2. EPINEPHRINE [Suspect]
     Indication: STRIDOR
     Dosage: IH
     Route: 055
  3. OXYGEN (OXYGEN) [Suspect]
     Indication: STRIDOR
     Dosage: SEE TEXT, IH
     Route: 055

REACTIONS (2)
  - ACUTE RESPIRATORY DISTRESS SYNDROME [None]
  - DRUG INEFFECTIVE [None]
